FAERS Safety Report 4732649-0 (Version None)
Quarter: 2005Q3

REPORT INFORMATION
  Report Type: 
  Country: None (occurrence: None)
  Receive Date: 20050801
  Receipt Date: 20050718
  Transmission Date: 20060218
  Serious: Yes (Hospitalization, Other)
  Sender: FDA-Public Use
  Company Number: 2005062922

PATIENT
  Age: 50 Year
  Sex: Female
  Weight: 52.1637 kg

DRUGS (14)
  1. CELEBREX [Suspect]
     Indication: CARPAL TUNNEL SYNDROME
     Dosage: 200 MG (200 MG, 1 IN 1 D), ORAL
     Route: 048
     Dates: start: 20000101, end: 20040101
  2. CELEBREX [Suspect]
     Indication: FIBROMYALGIA
     Dosage: 200 MG (200 MG, 1 IN 1 D), ORAL
     Route: 048
     Dates: start: 20000101, end: 20040101
  3. DETROL LA [Suspect]
     Indication: BLADDER DISORDER
  4. ZANAFLEX [Concomitant]
  5. ALL  OTHER THERAPETUTIC PRODUCTS(ALL OTHER THERAPEUTIC PRODUCTS) [Concomitant]
  6. DIAZEPAM [Concomitant]
  7. LIPITOR [Concomitant]
  8. ECOTRIN 9ACETYLSALICYLIC ACID) [Concomitant]
  9. DULOXETINE HYDROCHLORIDE (DULOXETINE HYDROCHLORIDE) [Concomitant]
  10. LAMICTAL [Concomitant]
  11. KLONOPIN [Concomitant]
  12. CLORAZEPATE (CLORAZEPATE DIPOTASSIUM) [Concomitant]
  13. OXYBUTYNIN CHLORIDE [Concomitant]
  14. AMITRIPTYLINE HCL [Concomitant]

REACTIONS (29)
  - ABDOMINAL PAIN UPPER [None]
  - AMNESIA [None]
  - ANORECTAL DISORDER [None]
  - BALANCE DISORDER [None]
  - BLADDER DISORDER [None]
  - BLOOD CHOLESTEROL INCREASED [None]
  - CATARACT [None]
  - CONFUSIONAL STATE [None]
  - CYST [None]
  - DRUG INEFFECTIVE [None]
  - FALL [None]
  - FIBROMYALGIA [None]
  - GASTRIC DISORDER [None]
  - GLAUCOMA [None]
  - HEADACHE [None]
  - HYPOACUSIS [None]
  - INFLUENZA LIKE ILLNESS [None]
  - INSOMNIA [None]
  - LIVER DISORDER [None]
  - MUSCLE SPASMS [None]
  - MUSCLE TIGHTNESS [None]
  - MYOCARDIAL INFARCTION [None]
  - NASAL CONGESTION [None]
  - NERVOUSNESS [None]
  - PANIC ATTACK [None]
  - RECTAL HAEMORRHAGE [None]
  - SLEEP APNOEA SYNDROME [None]
  - URINARY INCONTINENCE [None]
  - WEIGHT DECREASED [None]
